FAERS Safety Report 25220070 (Version 3)
Quarter: 2025Q2

REPORT INFORMATION
  Report Type: Report from Study
  Country: GB (occurrence: GB)
  Receive Date: 20250421
  Receipt Date: 20250612
  Transmission Date: 20250716
  Serious: Yes (Other)
  Sender: FRESENIUS KABI
  Company Number: GB-FreseniusKabi-FK202505628

PATIENT
  Age: 38 Year
  Sex: Female
  Weight: 61.2 kg

DRUGS (7)
  1. TYENNE [Suspect]
     Active Substance: TOCILIZUMAB-AAZG
     Indication: Rheumatoid arthritis
     Route: 058
     Dates: start: 20240620, end: 20240913
  2. TYENNE [Suspect]
     Active Substance: TOCILIZUMAB-AAZG
     Route: 058
     Dates: start: 20240920, end: 20241130
  3. TYENNE [Suspect]
     Active Substance: TOCILIZUMAB-AAZG
     Route: 058
     Dates: start: 20241219
  4. METHOTREXATE [Concomitant]
     Active Substance: METHOTREXATE
     Indication: Rheumatoid arthritis
     Route: 065
     Dates: start: 202212
  5. SULFASALAZINE [Concomitant]
     Active Substance: SULFASALAZINE
     Indication: Rheumatoid arthritis
     Route: 065
     Dates: start: 202304
  6. PREDNISOLONE [Concomitant]
     Active Substance: PREDNISOLONE
     Indication: Rheumatoid arthritis
     Route: 048
     Dates: start: 202304
  7. FOLIC ACID [Concomitant]
     Active Substance: FOLIC ACID
     Indication: Product used for unknown indication
     Route: 048
     Dates: start: 20241008

REACTIONS (2)
  - Foetal death [Recovered/Resolved]
  - Pregnancy [Recovered/Resolved]

NARRATIVE: CASE EVENT DATE: 20250101
